FAERS Safety Report 7639522-9 (Version None)
Quarter: 2011Q3

REPORT INFORMATION
  Report Type: 
  Country: None (occurrence: None)
  Receive Date: 20110727
  Receipt Date: 20110719
  Transmission Date: 20111222
  Serious: Yes (Death, Life-Threatening)
  Sender: FDA-Public Use
  Company Number: JP-GLAXOSMITHKLINE-B0715283A

PATIENT
  Sex: Male
  Weight: 74 kg

DRUGS (5)
  1. FUNGUARD [Concomitant]
     Dosage: 50MG PER DAY
     Route: 042
     Dates: end: 20070701
  2. RAMELTEON [Concomitant]
     Dosage: .3MG PER DAY
     Route: 042
     Dates: end: 20070620
  3. ALKERAN [Suspect]
     Indication: CORD BLOOD TRANSPLANT THERAPY
     Dosage: 75MG PER DAY
     Route: 042
     Dates: start: 20070619, end: 20070620
  4. TACROLIMUS [Concomitant]
     Indication: IMMUNOSUPPRESSION
     Dosage: 2MG PER DAY
     Route: 065
     Dates: start: 20070621, end: 20070717
  5. FLUDARA [Suspect]
     Indication: CORD BLOOD TRANSPLANT THERAPY
     Dosage: 46MG PER DAY
     Route: 042
     Dates: start: 20070614, end: 20070618

REACTIONS (2)
  - HEPATIC VEIN OCCLUSION [None]
  - HISTIOCYTOSIS HAEMATOPHAGIC [None]
